FAERS Safety Report 5664923-8 (Version None)
Quarter: 2008Q1

REPORT INFORMATION
  Report Type: 
  Country: None (occurrence: None)
  Receive Date: 20080314
  Receipt Date: 20080303
  Transmission Date: 20080703
  Serious: Yes (Other)
  Sender: FDA-Public Use
  Company Number: CZ-PFIZER INC-2008004721

PATIENT
  Sex: Female

DRUGS (2)
  1. SORTIS [Suspect]
     Indication: LIPOPROTEIN DEFICIENCY
     Route: 048
  2. RIVOTRIL [Concomitant]
     Dosage: TEXT:0.5
     Route: 048

REACTIONS (2)
  - DERMATITIS EXFOLIATIVE [None]
  - INSOMNIA [None]
